FAERS Safety Report 9344044 (Version 2)
Quarter: 2013Q3

REPORT INFORMATION
  Report Type: Spontaneous
  Country: US (occurrence: US)
  Receive Date: 20130612
  Receipt Date: 20130718
  Transmission Date: 20140515
  Serious: Yes (Other)
  Sender: FDA-Public Use
  Company Number: US-PFIZER INC-2013172636

PATIENT
  Age: 30 Year
  Sex: Female
  Weight: 67.12 kg

DRUGS (3)
  1. PREMARIN [Suspect]
     Indication: MENORRHAGIA
     Dosage: 1.25, 1X/DAY
     Dates: start: 2008
  2. LYRICA [Suspect]
     Indication: FIBROMYALGIA
     Dosage: 75 MG, 3X/DAY
     Dates: start: 201211, end: 20130529
  3. SAVELLA [Concomitant]
     Indication: FIBROMYALGIA
     Dosage: 50 MG, 2X/DAY
     Dates: start: 2011

REACTIONS (6)
  - Hypertension [Not Recovered/Not Resolved]
  - Blood cholesterol increased [Not Recovered/Not Resolved]
  - Insomnia [Not Recovered/Not Resolved]
  - Depression [Recovered/Resolved]
  - Blister [Recovered/Resolved]
  - Weight increased [Recovered/Resolved]
